FAERS Safety Report 16720204 (Version 3)
Quarter: 2019Q3

REPORT INFORMATION
  Report Type: Spontaneous
  Country: IE (occurrence: IE)
  Receive Date: 20190820
  Receipt Date: 20190923
  Transmission Date: 20191005
  Serious: Yes (Other)
  Sender: FDA-Public Use
  Company Number: IE-ALLERGAN-1933659US

PATIENT
  Sex: Female

DRUGS (4)
  1. TINZAPARIN [Concomitant]
     Active Substance: TINZAPARIN
     Route: 065
  2. ASPIRIN. [Concomitant]
     Active Substance: ASPIRIN
     Route: 065
  3. ESTRADIOL UNK [Suspect]
     Active Substance: ESTRADIOL
     Indication: IN VITRO FERTILISATION
     Dosage: UNK (PATCH)
     Route: 065
  4. PROGESTERONE. [Concomitant]
     Active Substance: PROGESTERONE
     Indication: IN VITRO FERTILISATION
     Dosage: UNK
     Route: 065

REACTIONS (7)
  - Abortion spontaneous [Unknown]
  - Panniculitis [Recovering/Resolving]
  - Off label use [Unknown]
  - Joint stiffness [Recovering/Resolving]
  - Erythema [Recovering/Resolving]
  - Contraindicated product prescribed [Unknown]
  - Pregnancy [Unknown]
